FAERS Safety Report 5414292-3 (Version None)
Quarter: 2007Q3

REPORT INFORMATION
  Report Type: 
  Country: None (occurrence: None)
  Receive Date: 20070814
  Receipt Date: 20070802
  Transmission Date: 20080115
  Serious: Yes (Other)
  Sender: FDA-Public Use
  Company Number: US-PFIZER INC-2007065436

PATIENT
  Age: 39 Year
  Sex: Female

DRUGS (3)
  1. CHANTIX [Suspect]
     Dates: start: 20070722, end: 20070727
  2. IBUPROFEN [Concomitant]
     Dosage: DAILY DOSE:800MG
  3. OXYCONTIN [Concomitant]

REACTIONS (10)
  - DIZZINESS [None]
  - DYSPNOEA [None]
  - EAR DISCOMFORT [None]
  - HEART RATE DECREASED [None]
  - HEART RATE INCREASED [None]
  - HYPERHIDROSIS [None]
  - HYPERTENSION [None]
  - PALPITATIONS [None]
  - PARAESTHESIA [None]
  - PRESYNCOPE [None]
